FAERS Safety Report 7504502-0 (Version None)
Quarter: 2011Q2

REPORT INFORMATION
  Report Type: 
  Country: None (occurrence: None)
  Receive Date: 20110525
  Receipt Date: 20110518
  Transmission Date: 20111010
  Serious: Yes (Hospitalization)
  Sender: FDA-Public Use
  Company Number: US-US-EMD SERONO, INC.-7005123

PATIENT
  Sex: Female
  Weight: 105 kg

DRUGS (10)
  1. PROVIGIL [Concomitant]
     Indication: FATIGUE
  2. VICODIN [Concomitant]
     Indication: HEADACHE
     Dates: start: 20050101
  3. PROVIGIL [Concomitant]
     Indication: COGNITIVE DISORDER
     Dates: start: 20070101
  4. ORAL CONTRACEPTIVES [Suspect]
     Indication: OVARIAN CYST
     Dates: start: 20100401, end: 20100501
  5. ORAL CONTRACEPTIVES [Suspect]
     Indication: ORAL CONTRACEPTION
  6. MAXALT [Concomitant]
     Indication: MIGRAINE
     Dates: start: 20050101
  7. LEXAPRO [Concomitant]
     Indication: DEPRESSION
     Dates: start: 20070101
  8. ARICEPT [Concomitant]
     Indication: COGNITIVE DISORDER
     Dates: start: 20090101
  9. ORAL CONTRACEPTIVES [Suspect]
     Indication: PELVIC PAIN
  10. REBIF [Suspect]
     Indication: MULTIPLE SCLEROSIS
     Route: 058
     Dates: start: 20090706, end: 20100501

REACTIONS (5)
  - NEPHROLITHIASIS [None]
  - GENITAL DISORDER FEMALE [None]
  - PULMONARY EMBOLISM [None]
  - PELVIC PAIN [None]
  - DRUG ERUPTION [None]
